FAERS Safety Report 8534207-9 (Version None)
Quarter: 2012Q3

REPORT INFORMATION
  Report Type: 
  Country: None (occurrence: None)
  Receive Date: 20120724
  Receipt Date: 20120625
  Transmission Date: 20120928
  Serious: No
  Sender: FDA-Public Use
  Company Number: US-ASTRAZENECA-2012SE43129

PATIENT
  Sex: Female

DRUGS (2)
  1. NEXIUM [Suspect]
  2. PRILOSEC [Suspect]

REACTIONS (9)
  - HYPERCHLORHYDRIA [None]
  - WEIGHT DECREASED [None]
  - OFF LABEL USE [None]
  - REGURGITATION [None]
  - VOMITING [None]
  - NAUSEA [None]
  - GASTROOESOPHAGEAL REFLUX DISEASE [None]
  - MALAISE [None]
  - DYSPEPSIA [None]
